FAERS Safety Report 17058216 (Version 1)
Quarter: 2019Q4

REPORT INFORMATION
  Report Type: Report from Study
  Country: ES (occurrence: ES)
  Receive Date: 20191121
  Receipt Date: 20191121
  Transmission Date: 20200122
  Serious: Yes (Other)
  Sender: FDA-Public Use
  Company Number: ES-MYLANLABS-2019M1110306

PATIENT
  Age: 90 Year
  Sex: Female

DRUGS (4)
  1. IPRATROPIO BROMURO [Concomitant]
     Active Substance: IPRATROPIUM BROMIDE
     Indication: RESPIRATORY FAILURE
     Dosage: 1 DOSAGE FORM, Q8H
     Route: 055
     Dates: start: 20190321
  2. METILPREDNISOLONA                  /00049601/ [Concomitant]
     Active Substance: METHYLPREDNISOLONE
     Indication: ATYPICAL PNEUMONIA
     Dosage: 20 MILLIGRAM (1-1-0)
     Route: 051
     Dates: start: 20190321
  3. LEVOFLOXACINO                      /01278901/ [Concomitant]
     Indication: ATYPICAL PNEUMONIA
     Dates: start: 20190321
  4. SALBUTAMOL [Suspect]
     Active Substance: ALBUTEROL
     Indication: RESPIRATORY FAILURE
     Dosage: 1 DOSAGE FORM, Q8H
     Route: 055
     Dates: start: 20190321, end: 201903

REACTIONS (1)
  - Supraventricular tachycardia [Recovering/Resolving]

NARRATIVE: CASE EVENT DATE: 201903
